FAERS Safety Report 20092304 (Version 1)
Quarter: 2021Q4

REPORT INFORMATION
  Report Type: Spontaneous
  Country: US (occurrence: None)
  Receive Date: 20211119
  Receipt Date: 20211119
  Transmission Date: 20220303
  Serious: Yes (Life-Threatening, Disabling, Other)
  Sender: FDA-Public Use
  Company Number: None

PATIENT
  Age: 55 Year
  Sex: Female
  Weight: 53.52 kg

DRUGS (21)
  1. DEVICE [Suspect]
     Active Substance: DEVICE
  2. PLAQUENIL [Suspect]
     Active Substance: HYDROXYCHLOROQUINE SULFATE
  3. ZOLOFT [Concomitant]
     Active Substance: SERTRALINE HYDROCHLORIDE
  4. NALTREXONE [Concomitant]
     Active Substance: NALTREXONE
  5. NALTREXONE [Concomitant]
     Active Substance: NALTREXONE
  6. PROGESTERONE [Concomitant]
     Active Substance: PROGESTERONE
  7. TESTOSTERONE [Concomitant]
     Active Substance: TESTOSTERONE
  8. UNSPECIFIED INGREDIENT [Concomitant]
     Active Substance: UNSPECIFIED INGREDIENT
  9. MOTRIN [Concomitant]
     Active Substance: IBUPROFEN
  10. pectasol [Concomitant]
  11. methyl-CpG [Concomitant]
  12. kappArrest [Concomitant]
  13. MAGNESIUM [Concomitant]
     Active Substance: MAGNESIUM
  14. VITAMIN D NOS [Concomitant]
     Active Substance: VITAMIN D NOS
  15. DIETARY SUPPLEMENT [Concomitant]
     Active Substance: DIETARY SUPPLEMENT
  16. COENZYME Q10 [Concomitant]
     Active Substance: DIETARY SUPPLEMENT\UBIDECARENONE
  17. resvoxitrol [Concomitant]
  18. liposomal glutathi [Concomitant]
  19. ACTIVATED CHARCOAL [Concomitant]
     Active Substance: ACTIVATED CHARCOAL
  20. ACETYLCYSTEINE [Concomitant]
     Active Substance: ACETYLCYSTEINE
  21. lean focus [Concomitant]

REACTIONS (12)
  - Visual impairment [None]
  - Back pain [None]
  - Asthenia [None]
  - Paraesthesia [None]
  - Hypoaesthesia [None]
  - Feeling abnormal [None]
  - Hip arthroplasty [None]
  - Knee arthroplasty [None]
  - Serum ferritin decreased [None]
  - Metal poisoning [None]
  - Rheumatoid arthritis [None]
  - Pain [None]

NARRATIVE: CASE EVENT DATE: 20040101
